FAERS Safety Report 5988270-X (Version None)
Quarter: 2008Q4

REPORT INFORMATION
  Report Type: 
  Country: None (occurrence: None)
  Receive Date: 20081210
  Receipt Date: 20081203
  Transmission Date: 20090506
  Serious: Yes (Other)
  Sender: FDA-Public Use
  Company Number: AU-ASTRAZENECA-2008AP09392

PATIENT
  Age: 72 Year
  Sex: Male

DRUGS (2)
  1. ZOLADEX [Suspect]
     Indication: PROSTATE CANCER STAGE III
     Dosage: 2ND ADMINISTRATION
     Route: 058
  2. CLOPIDOGREL [Concomitant]
     Indication: PROSTATE CANCER STAGE III

REACTIONS (1)
  - INJECTION SITE HAEMORRHAGE [None]
